FAERS Safety Report 9091917 (Version 1)
Quarter: 2013Q1

REPORT INFORMATION
  Report Type: Spontaneous
  Country: NL (occurrence: NL)
  Receive Date: 20130201
  Receipt Date: 20130201
  Transmission Date: 20140127
  Serious: Yes (Hospitalization)
  Sender: FDA-Public Use
  Company Number: NL-UCBSA-076959

PATIENT
  Age: 65 Year
  Sex: Female
  Weight: 61 kg

DRUGS (8)
  1. KEPPRA [Suspect]
     Indication: EPILEPSY
     Route: 048
     Dates: start: 20120903
  2. CIPROFLOXACINE [Interacting]
     Indication: URINARY TRACT INFECTION
     Route: 048
     Dates: start: 20121203, end: 20121215
  3. CIPROFLOXACINE [Interacting]
     Indication: URINARY TRACT INFECTION
     Dates: start: 20120806, end: 20120820
  4. DIPHANTOINE-Z [Concomitant]
     Route: 048
     Dates: start: 20111030
  5. OXAZEPAM [Concomitant]
     Route: 048
     Dates: start: 20110314
  6. TRAVATAN [Concomitant]
     Dosage: 40 MCG/ML, ROUTE-EYE 1 DROP PER DAY
     Dates: start: 20120509
  7. FRISIUM [Concomitant]
     Route: 048
     Dates: start: 20110330
  8. DIAZEPAM [Concomitant]
     Dosage: DOSE-5 MG/ML, 1/DAY IF NECESSARY
     Route: 048
     Dates: start: 20120202

REACTIONS (3)
  - Epilepsy [Recovered/Resolved with Sequelae]
  - Drug interaction [Recovered/Resolved with Sequelae]
  - Urinary tract infection [Unknown]
